FAERS Safety Report 6714733-5 (Version None)
Quarter: 2010Q2

REPORT INFORMATION
  Report Type: 
  Country: None (occurrence: None)
  Receive Date: 20100507
  Receipt Date: 20100428
  Transmission Date: 20101027
  Serious: No
  Sender: FDA-Public Use
  Company Number: US-BIOGENIDEC-2010BI014646

PATIENT
  Age: 44 Year
  Sex: Female

DRUGS (2)
  1. TYSABRI [Suspect]
     Indication: MULTIPLE SCLEROSIS
     Route: 042
     Dates: start: 20071210, end: 20081110
  2. TYSABRI [Suspect]
     Route: 042
     Dates: start: 20100412

REACTIONS (7)
  - BURNING SENSATION [None]
  - DIZZINESS [None]
  - INSOMNIA [None]
  - LOSS OF CONTROL OF LEGS [None]
  - MULTIPLE SCLEROSIS RELAPSE [None]
  - TREMOR [None]
  - VISUAL FIELD DEFECT [None]
